FAERS Safety Report 6079470-1 (Version None)
Quarter: 2009Q1

REPORT INFORMATION
  Report Type: 
  Country: None (occurrence: None)
  Receive Date: 20090216
  Receipt Date: 20090205
  Transmission Date: 20090719
  Serious: Yes (Hospitalization)
  Sender: FDA-Public Use
  Company Number: PHHY2009NZ02292

PATIENT
  Sex: Male

DRUGS (9)
  1. CLOZARIL [Suspect]
     Indication: SCHIZOPHRENIA
     Dosage: 600 MG DAILY
     Dates: start: 19960916
  2. CLOZARIL [Suspect]
     Dosage: 50 MG, BID
     Dates: start: 20090120
  3. CLOZARIL [Suspect]
     Dosage: 75 MG, BID
     Dates: start: 20090121
  4. CLOZARIL [Suspect]
     Dosage: 100 MG, BID
     Dates: start: 20090122
  5. CLOZARIL [Suspect]
     Dosage: 125 MG, BID
     Dates: start: 20090123
  6. CLOZARIL [Suspect]
     Dosage: 150 MG, BID
     Dates: start: 20090124
  7. CLOZARIL [Suspect]
     Dosage: 175 MG, BID
     Dates: start: 20090125
  8. CLOZARIL [Suspect]
     Dosage: 200 MG, BID
  9. EPILIM [Concomitant]

REACTIONS (4)
  - CONVULSION [None]
  - LOSS OF CONSCIOUSNESS [None]
  - TREATMENT NONCOMPLIANCE [None]
  - WITHDRAWAL SYNDROME [None]
